FAERS Safety Report 16080096 (Version 1)
Quarter: 2019Q1

REPORT INFORMATION
  Report Type: Spontaneous
  Country: FR (occurrence: FR)
  Receive Date: 20190315
  Receipt Date: 20190315
  Transmission Date: 20190418
  Serious: Yes (Hospitalization, Other)
  Sender: FDA-Public Use
  Company Number: PHHY2019FR055564

PATIENT
  Age: 17 Year
  Sex: Female
  Weight: 49.5 kg

DRUGS (8)
  1. NUROFEN [Suspect]
     Active Substance: IBUPROFEN
     Indication: HEADACHE
  2. OFLOCET [Concomitant]
     Active Substance: OFLOXACIN
     Indication: PRODUCT USED FOR UNKNOWN INDICATION
     Dosage: 200 MG, QD
     Route: 065
     Dates: start: 20150529
  3. SPIFEN [Concomitant]
     Active Substance: IBUPROFEN
     Indication: PRODUCT USED FOR UNKNOWN INDICATION
     Dosage: UNK
     Route: 065
  4. PARACETAMOL [Suspect]
     Active Substance: ACETAMINOPHEN
     Indication: ABDOMINAL PAIN
  5. NUROFEN [Suspect]
     Active Substance: IBUPROFEN
     Indication: VERTIGO
  6. PARACETAMOL [Suspect]
     Active Substance: ACETAMINOPHEN
     Indication: HEADACHE
     Dosage: 1 G, QD
     Route: 048
     Dates: start: 20150526, end: 20150530
  7. NUROFEN [Suspect]
     Active Substance: IBUPROFEN
     Indication: ABDOMINAL PAIN
     Dosage: 400 MG, QD
     Route: 048
     Dates: start: 20150528, end: 20150531
  8. NUROFEN [Suspect]
     Active Substance: IBUPROFEN
     Indication: PYREXIA

REACTIONS (5)
  - Cholestasis [Recovering/Resolving]
  - Vomiting [Unknown]
  - Jaundice [Unknown]
  - Hepatitis [Recovering/Resolving]
  - Rash macular [Unknown]

NARRATIVE: CASE EVENT DATE: 20150529
